FAERS Safety Report 9858779 (Version 2)
Quarter: 2014Q1

REPORT INFORMATION
  Report Type: Report from Study
  Country: CZ (occurrence: CZ)
  Receive Date: 20140131
  Receipt Date: 20140211
  Transmission Date: 20141002
  Serious: Yes (Death, Life-Threatening, Other)
  Sender: FDA-Public Use
  Company Number: CZ-SA-2014SA012114

PATIENT
  Age: 65 Year
  Sex: Male
  Weight: 90 kg

DRUGS (5)
  1. CABAZITAXEL [Suspect]
     Indication: PROSTATE CANCER METASTATIC
     Route: 042
     Dates: start: 20130318
  2. ANTINEOPLASTIC AGENTS [Suspect]
     Indication: PROSTATE CANCER METASTATIC
     Route: 042
     Dates: start: 20130312
  3. PREDNISONE [Concomitant]
     Indication: PROSTATE CANCER METASTATIC
     Route: 048
     Dates: start: 20130318, end: 20130727
  4. PEGFILGRASTIM [Concomitant]
     Indication: ANAEMIA PROPHYLAXIS
     Route: 058
     Dates: start: 20130318, end: 20130727
  5. FENTANYL [Concomitant]
     Indication: ANALGESIC THERAPY
     Route: 062
     Dates: start: 20130304, end: 20130727

REACTIONS (4)
  - Neutropenia [Unknown]
  - Leukopenia [Unknown]
  - Lymphopenia [Unknown]
  - General physical health deterioration [Fatal]
